FAERS Safety Report 8571256-9 (Version None)
Quarter: 2012Q3

REPORT INFORMATION
  Report Type: 
  Country: None (occurrence: None)
  Receive Date: 20120730
  Receipt Date: 20120730
  Transmission Date: 20120928
  Serious: No
  Sender: FDA-Public Use
  Company Number: None

PATIENT
  Age: 33 Year
  Sex: Male
  Weight: 105.5 kg

DRUGS (1)
  1. PIPERACILLIN AND TAZOBACTAM [Suspect]
     Indication: ABDOMINAL PAIN
     Dosage: 3.375 MG ONCE IV
     Route: 042
     Dates: start: 20120725, end: 20120725

REACTIONS (1)
  - RASH [None]
